FAERS Safety Report 5393210-0 (Version None)
Quarter: 2007Q3

REPORT INFORMATION
  Report Type: 
  Country: None (occurrence: None)
  Receive Date: 20070718
  Receipt Date: 20060602
  Transmission Date: 20080115
  Serious: Yes (Other)
  Sender: FDA-Public Use
  Company Number: 2006072403

PATIENT
  Age: 50 Year
  Sex: Male

DRUGS (2)
  1. CELEBREX [Suspect]
     Indication: INFLAMMATION
     Dates: start: 19980601
  2. VIOXX [Suspect]
     Indication: ILL-DEFINED DISORDER

REACTIONS (5)
  - ABDOMINAL PAIN UPPER [None]
  - DIARRHOEA [None]
  - DYSPEPSIA [None]
  - MYOCARDIAL INFARCTION [None]
  - VOMITING [None]
